FAERS Safety Report 9250935 (Version 2)
Quarter: 2013Q2

REPORT INFORMATION
  Report Type: Report from Study
  Country: US (occurrence: US)
  Receive Date: 20130424
  Receipt Date: 20130508
  Transmission Date: 20140414
  Serious: Yes (Hospitalization)
  Sender: FDA-Public Use
  Company Number: PHEH2013US009002

PATIENT
  Age: 51 Year
  Sex: Female

DRUGS (5)
  1. GILENYA [Suspect]
     Indication: MULTIPLE SCLEROSIS
     Dosage: 0.5 MG, QD
     Route: 048
     Dates: start: 20130325, end: 20130420
  2. MICARDIS [Concomitant]
     Dosage: 12.5 MG, DAILY
  3. MIRAPEX [Concomitant]
     Indication: RESTLESS LEGS SYNDROME
     Dosage: 1 DF, QID
     Route: 048
  4. PROVIGIL [Concomitant]
     Dosage: 200 MG, BID
  5. MIRALAX [Concomitant]

REACTIONS (7)
  - Costochondritis [Recovering/Resolving]
  - Chest pain [Recovering/Resolving]
  - Hypoaesthesia [Unknown]
  - Chest discomfort [Unknown]
  - Back pain [Not Recovered/Not Resolved]
  - Hiatus hernia [Unknown]
  - Dyspnoea [Unknown]
